FAERS Safety Report 17884409 (Version 1)
Quarter: 2020Q2

REPORT INFORMATION
  Report Type: Spontaneous
  Country: US (occurrence: US)
  Receive Date: 20200611
  Receipt Date: 20200611
  Transmission Date: 20200714
  Serious: No
  Sender: FDA-Public Use
  Company Number: US-PFIZER INC-2020226324

PATIENT
  Age: 77 Year
  Sex: Male

DRUGS (2)
  1. BRAFTOVI [Suspect]
     Active Substance: ENCORAFENIB
     Indication: MALIGNANT MELANOMA
     Dosage: 450 MG, 1X/DAY (6 CAPSULES BY MOUTH ONCE DAILY)
     Route: 048
     Dates: start: 202003, end: 202005
  2. MEKTOVI [Suspect]
     Active Substance: BINIMETINIB
     Indication: MALIGNANT MELANOMA
     Dosage: 45 MG, 2X/DAY (3 TABLETS BY MOUTH TWICE DAILY)
     Route: 048
     Dates: start: 202003, end: 202005

REACTIONS (1)
  - Hypersensitivity [Not Recovered/Not Resolved]
